FAERS Safety Report 12005031 (Version 6)
Quarter: 2018Q1

REPORT INFORMATION
  Report Type: Spontaneous
  Country: JP (occurrence: JP)
  Receive Date: 20160204
  Receipt Date: 20180102
  Transmission Date: 20180508
  Serious: Yes (Death, Hospitalization)
  Sender: FDA-Public Use
  Company Number: JP-EISAI MEDICAL RESEARCH-EC-2016-014140

PATIENT
  Sex: Female

DRUGS (2)
  1. MICARDIS [Suspect]
     Active Substance: TELMISARTAN
     Indication: PRODUCT USED FOR UNKNOWN INDICATION
     Dosage: UNKNOWN
     Route: 065
  2. PARIET [Suspect]
     Active Substance: RABEPRAZOLE SODIUM
     Indication: PRODUCT USED FOR UNKNOWN INDICATION
     Dosage: UNKNOWN
     Route: 048

REACTIONS (1)
  - Interstitial lung disease [Fatal]
